FAERS Safety Report 11318037 (Version 1)
Quarter: 2015Q3

REPORT INFORMATION
  Report Type: Report from Study
  Country: US (occurrence: US)
  Receive Date: 20150728
  Receipt Date: 20150728
  Transmission Date: 20151125
  Serious: Yes (Other)
  Sender: FDA-Public Use
  Company Number: US-ASTRAZENECA-2015SE24194

PATIENT
  Age: 23365 Day
  Sex: Female

DRUGS (1)
  1. LYNPARZA [Suspect]
     Active Substance: OLAPARIB
     Indication: OVARIAN CANCER
     Route: 048
     Dates: end: 20150322

REACTIONS (8)
  - Abdominal distension [Unknown]
  - Vomiting [Unknown]
  - Blood potassium decreased [Unknown]
  - Disease progression [Unknown]
  - Hypophagia [Unknown]
  - Abdominal pain upper [Unknown]
  - Nausea [Unknown]
  - Dehydration [Unknown]

NARRATIVE: CASE EVENT DATE: 20150305
